FAERS Safety Report 7282154-5 (Version None)
Quarter: 2011Q1

REPORT INFORMATION
  Report Type: 
  Country: None (occurrence: None)
  Receive Date: 20110208
  Receipt Date: 20110201
  Transmission Date: 20110831
  Serious: Yes (Other)
  Sender: FDA-Public Use
  Company Number: US-PFIZER INC-US-WYE-H15724210

PATIENT
  Sex: Female
  Weight: 79.365 kg

DRUGS (3)
  1. EFFEXOR XR [Suspect]
     Indication: DEPRESSION
     Dosage: 75 MG, 1X/DAY
     Route: 065
     Dates: start: 20050101
  2. LYRICA [Suspect]
     Dosage: 75 MG, 2X/DAY
     Dates: start: 20090401
  3. XANAX [Concomitant]
     Dosage: 1 MG, 1X/DAY
     Route: 065

REACTIONS (8)
  - SPINAL DISORDER [None]
  - CONVULSION [None]
  - PELVIC PAIN [None]
  - BRAIN NEOPLASM [None]
  - MASS [None]
  - CYSTITIS INTERSTITIAL [None]
  - LUNG NEOPLASM [None]
  - ARTERIAL DISORDER [None]
